FAERS Safety Report 12292033 (Version 4)
Quarter: 2018Q1

REPORT INFORMATION
  Report Type: Report from Study
  Country: US (occurrence: US)
  Receive Date: 20160421
  Receipt Date: 20180123
  Transmission Date: 20180508
  Serious: No
  Sender: FDA-Public Use
  Company Number: US-AMGEN-USASP2016028061

PATIENT
  Age: 61 Year
  Sex: Female
  Weight: 68.27 kg

DRUGS (4)
  1. REPATHA [Suspect]
     Active Substance: EVOLOCUMAB
     Dosage: 140 MG, TWICE PER MONTHS
     Route: 058
  2. LIVALO [Concomitant]
     Active Substance: PITAVASTATIN CALCIUM
     Indication: MYOCARDIAL INFARCTION
     Dosage: UNK
  3. REPATHA [Suspect]
     Active Substance: EVOLOCUMAB
     Indication: HYPERCHOLESTEROLAEMIA
     Dosage: 140 MG, Q2WK
     Route: 058
     Dates: start: 20160219
  4. COENZYME Q10 [Concomitant]
     Active Substance: UBIDECARENONE

REACTIONS (8)
  - Nausea [Recovered/Resolved]
  - Myalgia [Recovered/Resolved]
  - Burning sensation [Unknown]
  - Pain in extremity [Recovered/Resolved]
  - Rhinorrhoea [Unknown]
  - Respiratory disorder [Not Recovered/Not Resolved]
  - Muscle spasms [Recovered/Resolved]
  - Cough [Not Recovered/Not Resolved]

NARRATIVE: CASE EVENT DATE: 201602
